FAERS Safety Report 17057759 (Version 1)
Quarter: 2019Q4

REPORT INFORMATION
  Report Type: Spontaneous
  Country: US (occurrence: US)
  Receive Date: 20191120
  Receipt Date: 20191120
  Transmission Date: 20200122
  Serious: Yes (Life-Threatening, Hospitalization, Disabling)
  Sender: FDA-Public Use
  Company Number: None

PATIENT
  Age: 76 Year
  Sex: Female

DRUGS (1)
  1. OPDIVO [Suspect]
     Active Substance: NIVOLUMAB
     Indication: NON-SMALL CELL LUNG CANCER
     Dosage: ?          OTHER FREQUENCY:EVERY 28 DAYS;?
     Route: 042
     Dates: start: 20170906, end: 20190826

REACTIONS (7)
  - Nausea [None]
  - Type 1 diabetes mellitus [None]
  - Asthenia [None]
  - Dehydration [None]
  - Diabetic ketoacidosis [None]
  - Abdominal pain [None]
  - Vomiting [None]

NARRATIVE: CASE EVENT DATE: 20190826
